FAERS Safety Report 15256544 (Version 2)
Quarter: 2018Q4

REPORT INFORMATION
  Report Type: Spontaneous
  Country: IT (occurrence: IT)
  Receive Date: 20180808
  Receipt Date: 20181218
  Transmission Date: 20190204
  Serious: Yes (Hospitalization, Other)
  Sender: FDA-Public Use
  Company Number: IT-NOVOPROD-614004

PATIENT
  Age: 37 Year
  Sex: Female
  Weight: 57 kg

DRUGS (7)
  1. NOVORAPID [Suspect]
     Active Substance: INSULIN ASPART
     Dosage: 27 IU, QD
     Route: 065
  2. TRESIBA [Suspect]
     Active Substance: INSULIN DEGLUDEC
     Indication: TYPE 1 DIABETES MELLITUS
     Dosage: 14 IU, QD BED TIME
     Route: 065
  3. LEVOTHYROXINE. [Concomitant]
     Active Substance: LEVOTHYROXINE
     Dosage: DOSE INCREASED
  4. TRESIBA [Suspect]
     Active Substance: INSULIN DEGLUDEC
     Dosage: 15 IU, QD
     Route: 065
  5. LEVOTHYROXINE. [Concomitant]
     Active Substance: LEVOTHYROXINE
     Indication: PAPILLARY THYROID CANCER
     Dosage: UNK
  6. NOVORAPID [Suspect]
     Active Substance: INSULIN ASPART
     Dosage: 11 IU, QD
     Route: 065
  7. NOVORAPID [Suspect]
     Active Substance: INSULIN ASPART
     Indication: TYPE 1 DIABETES MELLITUS
     Dosage: 2 IU AT BREAKFAST, 6 IU AT LUNCH AND DINNER
     Route: 065

REACTIONS (7)
  - Premature delivery [Recovered/Resolved]
  - Vaginal haemorrhage [Unknown]
  - Off label use [Unknown]
  - Placental disorder [Unknown]
  - Exposure during pregnancy [Recovered/Resolved]
  - Threatened labour [Recovered/Resolved]
  - Preterm premature rupture of membranes [Recovered/Resolved]

NARRATIVE: CASE EVENT DATE: 20160611
